FAERS Safety Report 19810715 (Version 1)
Quarter: 2021Q3

REPORT INFORMATION
  Report Type: Report from Study
  Country: IT (occurrence: IT)
  Receive Date: 20210909
  Receipt Date: 20210909
  Transmission Date: 20211014
  Serious: Yes (Hospitalization, Other)
  Sender: FDA-Public Use
  Company Number: IT-BIOGEN-2021BI01009295

PATIENT
  Age: 78 Year
  Sex: Female
  Weight: 75.2 kg

DRUGS (14)
  1. BIIB037 [Suspect]
     Active Substance: ADUCANUMAB
     Indication: DEMENTIA ALZHEIMER^S TYPE
     Route: 042
     Dates: start: 20210202, end: 20210427
  2. TRIATEC [Concomitant]
     Indication: HYPERTENSION
     Dosage: 2/1 CP
     Route: 048
     Dates: start: 20140715
  3. ACETYLSALICYLIC ACID [Concomitant]
     Active Substance: ASPIRIN
     Indication: CARDIOVASCULAR EVENT PROPHYLAXIS
     Route: 048
     Dates: start: 20140715
  4. SOTALOL. [Concomitant]
     Active Substance: SOTALOL
     Indication: HYPERTENSION
     Route: 048
     Dates: start: 20190527
  5. BISOPROLOL [Concomitant]
     Active Substance: BISOPROLOL
     Indication: HYPERTENSION
     Route: 048
     Dates: start: 20190527
  6. MEMANTINE. [Concomitant]
     Active Substance: MEMANTINE
     Indication: DEMENTIA
     Route: 048
     Dates: start: 20200312
  7. BIVIS [Concomitant]
     Active Substance: AMLODIPINE BESYLATE\OLMESARTAN MEDOXOMIL
     Route: 065
  8. GINO?CANESTEN [Concomitant]
     Active Substance: CLOTRIMAZOLE
     Route: 065
  9. ATORVASTATIN [Concomitant]
     Active Substance: ATORVASTATIN
     Indication: HYPERCHOLESTEROLAEMIA
     Route: 048
     Dates: start: 20160204
  10. DONEPEZIL. [Concomitant]
     Active Substance: DONEPEZIL
     Indication: DEMENTIA
     Route: 048
     Dates: start: 20190527
  11. PANTOPRAZOLE [Concomitant]
     Active Substance: PANTOPRAZOLE
     Route: 065
  12. TRAZODONE [Concomitant]
     Active Substance: TRAZODONE HYDROCHLORIDE
     Indication: DEMENTIA
     Route: 048
     Dates: start: 20200527
  13. DIFLUCAN [Concomitant]
     Active Substance: FLUCONAZOLE
     Route: 065
  14. CEFIXORAL [Concomitant]
     Active Substance: CEFIXIME
     Route: 065

REACTIONS (1)
  - Amyloid related imaging abnormality-oedema/effusion [Not Recovered/Not Resolved]

NARRATIVE: CASE EVENT DATE: 20210429
